FAERS Safety Report 5348458-8 (Version None)
Quarter: 2007Q2

REPORT INFORMATION
  Report Type: 
  Country: None (occurrence: None)
  Receive Date: 20070606
  Receipt Date: 20070529
  Transmission Date: 20071010
  Serious: Yes (Other)
  Sender: FDA-Public Use
  Company Number: DE-PFIZER INC-2007036176

PATIENT
  Sex: Female
  Weight: 53 kg

DRUGS (3)
  1. LYRICA [Suspect]
     Indication: GENERALISED ANXIETY DISORDER
     Dosage: DAILY DOSE:150MG-FREQ:BID
     Route: 048
  2. LYRICA [Interacting]
     Indication: PANIC ATTACK
  3. TAVOR [Interacting]
     Indication: PANIC ATTACK
     Dosage: DAILY DOSE:2MG-FREQ:DAILY

REACTIONS (6)
  - ANXIETY [None]
  - DIZZINESS [None]
  - DRUG INTERACTION [None]
  - MALAISE [None]
  - PANIC REACTION [None]
  - RESPIRATORY DEPRESSION [None]
